FAERS Safety Report 7556516-2 (Version None)
Quarter: 2011Q2

REPORT INFORMATION
  Report Type: 
  Country: None (occurrence: None)
  Receive Date: 20110620
  Receipt Date: 20110617
  Transmission Date: 20111010
  Serious: Yes (Other)
  Sender: FDA-Public Use
  Company Number: US-ROXANE LABORATORIES, INC.-2011-RO-00700RO

PATIENT
  Age: 40 Year
  Sex: Female
  Weight: 113 kg

DRUGS (3)
  1. PREDNISONE [Suspect]
     Indication: UVEITIS
     Dosage: 60 MG
     Route: 048
     Dates: start: 20100216, end: 20100219
  2. PREDNISONE [Suspect]
     Dosage: 10 MG
     Dates: start: 20100713, end: 20100830
  3. PREDNISONE [Suspect]
     Dosage: 5 MG
     Route: 048
     Dates: start: 20110308, end: 20110328

REACTIONS (3)
  - CONDITION AGGRAVATED [None]
  - UVEITIS [None]
  - ANGLE CLOSURE GLAUCOMA [None]
